FAERS Safety Report 7604744-X (Version None)
Quarter: 2011Q3

REPORT INFORMATION
  Report Type: 
  Country: None (occurrence: None)
  Receive Date: 20110712
  Receipt Date: 20110627
  Transmission Date: 20111222
  Serious: Yes (Other)
  Sender: FDA-Public Use
  Company Number: PHHY2011US57047

PATIENT
  Sex: Female
  Weight: 45.805 kg

DRUGS (7)
  1. SENOKOT [Concomitant]
  2. LORTAB [Concomitant]
     Dosage: EVERY 8 HOURS
  3. SUTENT [Concomitant]
  4. REGLAN [Concomitant]
     Dosage: 10 MG, TID
  5. GLEEVEC [Suspect]
     Indication: GASTROINTESTINAL STROMAL TUMOUR
     Dosage: 400 MG, QD
     Route: 048
     Dates: start: 20070101
  6. NEXAVAR [Concomitant]
  7. PROMETHAZINE [Concomitant]
     Dosage: 10 MG, EVERY 6 HOURS

REACTIONS (11)
  - GASTROINTESTINAL STROMAL TUMOUR [None]
  - SKIN TOXICITY [None]
  - HYDRONEPHROSIS [None]
  - VOMITING [None]
  - NEOPLASM MALIGNANT [None]
  - METASTASES TO LUNG [None]
  - ABDOMINAL PAIN LOWER [None]
  - RENAL FAILURE ACUTE [None]
  - DRUG RESISTANCE [None]
  - NAUSEA [None]
  - URINARY TRACT INFECTION [None]
